FAERS Safety Report 13732639 (Version 1)
Quarter: 2017Q3

REPORT INFORMATION
  Report Type: Spontaneous
  Country: US (occurrence: US)
  Receive Date: 20170707
  Receipt Date: 20170707
  Transmission Date: 20171127
  Serious: Yes (Other)
  Sender: FDA-Public Use
  Company Number: US-ROCHE-1221712

PATIENT
  Age: 29 Year
  Sex: Female
  Weight: 62.2 kg

DRUGS (3)
  1. PERJETA [Suspect]
     Active Substance: PERTUZUMAB
     Indication: BREAST CANCER
     Route: 042
  2. TAXOTERE [Suspect]
     Active Substance: DOCETAXEL
     Indication: BREAST CANCER
     Route: 042
     Dates: start: 20130314
  3. HERCEPTIN [Suspect]
     Active Substance: TRASTUZUMAB
     Indication: BREAST CANCER
     Route: 042

REACTIONS (7)
  - Rash erythematous [Recovered/Resolved]
  - Pruritus [Unknown]
  - Skin tightness [Unknown]
  - Pain of skin [Unknown]
  - Rash [Unknown]
  - Skin warm [Unknown]
  - Dry skin [Unknown]

NARRATIVE: CASE EVENT DATE: 20130411
